FAERS Safety Report 6574679-2 (Version None)
Quarter: 2010Q1

REPORT INFORMATION
  Report Type: 
  Country: None (occurrence: None)
  Receive Date: 20100209
  Receipt Date: 20100204
  Transmission Date: 20100710
  Serious: Yes (Death)
  Sender: FDA-Public Use
  Company Number: PHHY2010IL06050

PATIENT
  Age: 59 Year
  Sex: Male

DRUGS (1)
  1. GLEEVEC [Suspect]
     Indication: GASTROINTESTINAL STROMAL TUMOUR
     Dosage: 800 MG DAILY
     Route: 048

REACTIONS (3)
  - ENCEPHALOPATHY [None]
  - PNEUMONIA ASPIRATION [None]
  - SEPSIS [None]
